FAERS Safety Report 9767624 (Version 1)
Quarter: 2013Q4

REPORT INFORMATION
  Report Type: Report from Study
  Country: BR (occurrence: BR)
  Receive Date: 20131217
  Receipt Date: 20131217
  Transmission Date: 20140711
  Serious: Yes (Death, Hospitalization, Other)
  Sender: FDA-Public Use
  Company Number: PHHY2013BR146490

PATIENT
  Age: 84 Year
  Sex: Female
  Weight: 80 kg

DRUGS (3)
  1. DIOVAN AMLO FIX [Suspect]
     Indication: HYPERTENSION
     Dosage: 1 DF (320MG VALSARTAN/5MG AMLODIPINE), DAILY
     Route: 048
     Dates: end: 20130325
  2. SIMVASTATIN [Concomitant]
     Indication: BLOOD CHOLESTEROL INCREASED
     Dosage: 1 DF, (20 MG) DAILY
     Route: 048
  3. APRAZ [Concomitant]
     Indication: HYPERTENSION
     Dosage: 1 DF (0.25 MG), DAILY
     Route: 048

REACTIONS (4)
  - Infarction [Fatal]
  - Parkinson^s disease [Not Recovered/Not Resolved]
  - Spinal disorder [Not Recovered/Not Resolved]
  - Gait disturbance [Not Recovered/Not Resolved]
